FAERS Safety Report 14006749 (Version 1)
Quarter: 2017Q3

REPORT INFORMATION
  Report Type: Spontaneous
  Country: US (occurrence: US)
  Receive Date: 20170925
  Receipt Date: 20170925
  Transmission Date: 20171128
  Serious: No
  Sender: FDA-Public Use
  Company Number: US-ALVOGEN-2017-ALVOGEN-092646

PATIENT
  Age: 64 Year
  Sex: Male

DRUGS (1)
  1. RIVASTIGMINE. [Suspect]
     Active Substance: RIVASTIGMINE
     Indication: PRODUCT USED FOR UNKNOWN INDICATION
     Dosage: 4.6MG PATCHES,P0018AL0AT EXP 10/2016
     Route: 062

REACTIONS (4)
  - Abnormal behaviour [Unknown]
  - Product packaging issue [Unknown]
  - Nonspecific reaction [Unknown]
  - Drug intolerance [Unknown]
